FAERS Safety Report 8129979-1 (Version None)
Quarter: 2012Q1

REPORT INFORMATION
  Report Type: 
  Country: None (occurrence: None)
  Receive Date: 20120210
  Receipt Date: 20120202
  Transmission Date: 20120608
  Serious: Yes (Death)
  Sender: FDA-Public Use
  Company Number: US-ABBOTT-12P-163-0889846-00

PATIENT
  Sex: Female

DRUGS (10)
  1. HUMIRA [Suspect]
     Indication: COLITIS ULCERATIVE
     Route: 058
     Dates: start: 20080110, end: 20081113
  2. ACETAMINOPHEN [Concomitant]
     Indication: ARTHRITIS
     Dates: start: 20040101
  3. NASONEX [Concomitant]
     Indication: SEASONAL ALLERGY
     Dosage: 1 SPRAY
     Dates: start: 20030101
  4. HYDROXYZINE [Concomitant]
     Indication: SEASONAL ALLERGY
     Dates: start: 20030101
  5. GLUCOSAMINE/MSM [Concomitant]
     Indication: ARTHRITIS
     Dates: start: 20040101
  6. PREMARIN [Concomitant]
     Indication: HORMONE REPLACEMENT THERAPY
     Dates: start: 20080123
  7. ESSENTIAL MINERAL [Concomitant]
     Indication: ROUTINE HEALTH MAINTENANCE
     Dates: start: 19960101
  8. FLOVENT [Concomitant]
     Indication: SEASONAL ALLERGY
     Dates: start: 20030101
  9. DICLOFENAC SODIUM [Concomitant]
     Indication: ARTHRITIS
     Dates: start: 20040101
  10. CARTIA XT [Concomitant]
     Indication: HYPERTENSION
     Dates: start: 20040101

REACTIONS (1)
  - DEATH [None]
